FAERS Safety Report 9538660 (Version 3)
Quarter: 2013Q4

REPORT INFORMATION
  Report Type: Report from Study
  Country: US (occurrence: US)
  Receive Date: 20130920
  Receipt Date: 20131115
  Transmission Date: 20140711
  Serious: Yes (Disabling, Other)
  Sender: FDA-Public Use
  Company Number: PHEH2013US019521

PATIENT
  Age: 42 Year
  Sex: Female
  Weight: 49 kg

DRUGS (14)
  1. GILENYA [Suspect]
     Indication: MULTIPLE SCLEROSIS
     Dosage: 0.5 MG, QD
     Route: 048
     Dates: start: 20120606
  2. BACLOFEN [Concomitant]
     Indication: MUSCLE SPASMS
     Dosage: 20 MG, TID
     Route: 048
  3. FOSAMAX [Concomitant]
     Dosage: 70 MG, QW
     Route: 048
  4. IMITREX//SUMATRIPTAN [Concomitant]
     Indication: MIGRAINE
     Dosage: 100 MG, PRN
     Route: 048
  5. LYRICA [Concomitant]
     Indication: NEURALGIA
     Dosage: 150 MG, BID
     Route: 048
  6. NEXIUM//ESOMEPRAZOLE MAGNESIUM [Concomitant]
     Dosage: 40 MG, BID
     Route: 048
  7. OXYCONTIN [Concomitant]
     Dosage: 60 MG, TID
     Route: 048
  8. PERCOCET [Concomitant]
     Dosage: 1 DF, (10-325 MG, PRN)
     Route: 048
  9. PROCIN//PROMETHAZINE HYDROCHLORIDE [Concomitant]
     Indication: NAUSEA
     Dosage: 25 MG, Q6-8H
     Route: 048
  10. VESICARE [Concomitant]
     Dosage: 5 MG, QD
     Route: 048
  11. ZOLOFT [Concomitant]
     Dosage: 100 MG, QD
     Route: 048
  12. AMPYRA [Concomitant]
     Indication: MULTIPLE SCLEROSIS
     Dosage: 10 MG, QD
  13. MARINOL [Concomitant]
     Dosage: 25 MG, QD
     Route: 048
  14. NEXIUM [Concomitant]
     Dosage: 40 MG, TID
     Route: 048

REACTIONS (10)
  - Gait disturbance [Not Recovered/Not Resolved]
  - Blindness [Recovering/Resolving]
  - Premature menopause [Not Recovered/Not Resolved]
  - Vision blurred [Recovering/Resolving]
  - Multiple sclerosis relapse [Recovering/Resolving]
  - Paraesthesia [Not Recovered/Not Resolved]
  - Dizziness [Not Recovered/Not Resolved]
  - Back pain [Not Recovered/Not Resolved]
  - Photopsia [Recovering/Resolving]
  - Headache [Recovering/Resolving]
